FAERS Safety Report 5569121-4 (Version None)
Quarter: 2007Q4

REPORT INFORMATION
  Report Type: 
  Country: None (occurrence: None)
  Receive Date: 20071220
  Receipt Date: 20070723
  Transmission Date: 20080405
  Serious: No
  Sender: FDA-Public Use
  Company Number: A0665793A

PATIENT
  Sex: Male

DRUGS (8)
  1. AVODART [Suspect]
     Indication: BENIGN PROSTATIC HYPERPLASIA
     Dosage: .5MG PER DAY
     Route: 048
     Dates: start: 20070706
  2. FLOMAX [Suspect]
     Dosage: .4MG PER DAY
     Dates: start: 20070706
  3. LASIX [Concomitant]
  4. POTASSIUM CHLORIDE [Concomitant]
  5. LOVASTATIN [Concomitant]
  6. ALLOPURINOL [Concomitant]
  7. VITAMINS [Concomitant]
  8. FISH OIL [Concomitant]

REACTIONS (1)
  - POLLAKIURIA [None]
